FAERS Safety Report 9997606 (Version 1)
Quarter: 2014Q1

REPORT INFORMATION
  Report Type: Spontaneous
  Country: US (occurrence: None)
  Receive Date: 20140225
  Receipt Date: 20140225
  Transmission Date: 20141002
  Serious: Yes (Other)
  Sender: FDA-Public Use
  Company Number: 2013-348

PATIENT
  Age: 57 Year
  Sex: Female

DRUGS (2)
  1. PRIALT [Suspect]
     Indication: PAIN
     Route: 037
     Dates: start: 201305, end: 201305
  2. MS CONTIN (MORPHINE SULFATE) [Concomitant]

REACTIONS (9)
  - Urinary retention [None]
  - Hallucination, visual [None]
  - Malaise [None]
  - Abnormal dreams [None]
  - Muscle twitching [None]
  - Migraine [None]
  - Diarrhoea [None]
  - Nausea [None]
  - Vomiting [None]
